FAERS Safety Report 8519637-3 (Version None)
Quarter: 2012Q3

REPORT INFORMATION
  Report Type: 
  Country: None (occurrence: None)
  Receive Date: 20120718
  Receipt Date: 20120709
  Transmission Date: 20120928
  Serious: Yes (Other)
  Sender: FDA-Public Use
  Company Number: AU-BRISTOL-MYERS SQUIBB COMPANY-16756819

PATIENT
  Age: 58 Year
  Sex: Female
  Weight: 52 kg

DRUGS (10)
  1. FOLIC ACID [Concomitant]
  2. METFORMIN HYDROCHLORIDE [Concomitant]
  3. METHOTREXATE [Concomitant]
  4. METOPROLOL SUCCINATE [Concomitant]
  5. ORENCIA [Suspect]
     Indication: RHEUMATOID ARTHRITIS
     Route: 042
     Dates: start: 20110706
  6. ATACAND [Concomitant]
  7. NAPROXEN [Concomitant]
  8. DILANTIN [Concomitant]
  9. ASPIRIN [Concomitant]
  10. LIPITOR [Concomitant]

REACTIONS (1)
  - FOOT DEFORMITY [None]
